FAERS Safety Report 5428788-1 (Version None)
Quarter: 2007Q3

REPORT INFORMATION
  Report Type: 
  Country: None (occurrence: None)
  Receive Date: 20070829
  Receipt Date: 20070821
  Transmission Date: 20080115
  Serious: Yes (Other)
  Sender: FDA-Public Use
  Company Number: PHEH2007US11442

PATIENT
  Age: 50 Year
  Sex: Male

DRUGS (3)
  1. ESIDRIX [Suspect]
     Dosage: 25 MG, UNK
  2. NORVASC [Suspect]
     Dosage: 10 MG, UNK
  3. TOPROL-XL [Suspect]
     Dosage: 50 MG, UNK

REACTIONS (2)
  - CEREBRAL HAEMORRHAGE [None]
  - CEREBROVASCULAR ACCIDENT [None]
